FAERS Safety Report 7921554-4 (Version None)
Quarter: 2011Q4

REPORT INFORMATION
  Report Type: 
  Country: None (occurrence: None)
  Receive Date: 20111117
  Receipt Date: 20111116
  Transmission Date: 20120403
  Serious: Yes (Other)
  Sender: FDA-Public Use
  Company Number: US-PFIZER INC-2011281254

PATIENT
  Sex: Female
  Weight: 135.15 kg

DRUGS (2)
  1. TOPAMAX [Concomitant]
     Dosage: 75 MG, 2X/DAY
  2. PRISTIQ [Suspect]
     Indication: AUTONOMIC NEUROPATHY
     Dosage: 100 MG, 1X/DAY
     Route: 048
     Dates: start: 20081201

REACTIONS (4)
  - MALAISE [None]
  - DERMATOMYOSITIS [None]
  - DRUG INTOLERANCE [None]
  - PAIN [None]
